FAERS Safety Report 23326523 (Version 5)
Quarter: 2024Q2

REPORT INFORMATION
  Report Type: Spontaneous
  Country: US (occurrence: US)
  Receive Date: 20231221
  Receipt Date: 20240530
  Transmission Date: 20240716
  Serious: Yes (Other)
  Sender: FDA-Public Use
  Company Number: US-BRISTOL-MYERS SQUIBB COMPANY-2023-184924

PATIENT
  Age: 76 Year
  Sex: Male

DRUGS (3)
  1. REVLIMID [Suspect]
     Active Substance: LENALIDOMIDE
     Indication: Plasma cell myeloma
     Dosage: FREQUENCY: TAKE 1 CAPSULE BY MOUTH 1 TIME A DAY FOR 21 DAYS ON AND 14 DAYS OFF
     Route: 048
     Dates: start: 202312
  2. REVLIMID [Suspect]
     Active Substance: LENALIDOMIDE
     Indication: Neoplasm malignant
     Dosage: FREQUENCY: TAKE 1 CAPSULE BY MOUTH 1 TIME A DAY FOR 21 DAYS ON AND 14 DAYS OFF (35 DAYS CYCLE)?TAKE
     Route: 048
  3. REVLIMID [Suspect]
     Active Substance: LENALIDOMIDE
     Dosage: FREQUENCY: TAKE 1 CAPSULE BY MOUTH 1 TIME A DAY ON DAYS 1-21 OF EACH 35-DAY CYCLE
     Route: 048

REACTIONS (14)
  - Electric shock sensation [Unknown]
  - Asthenia [Unknown]
  - Loss of consciousness [Unknown]
  - Off label use [Unknown]
  - Rash [Unknown]
  - Arthralgia [Unknown]
  - Sunburn [Unknown]
  - Musculoskeletal chest pain [Unknown]
  - Vision blurred [Unknown]
  - Muscle spasms [Unknown]
  - Fatigue [Unknown]
  - Full blood count decreased [Unknown]
  - Insomnia [Unknown]
  - Pain in extremity [Unknown]
